FAERS Safety Report 9534959 (Version 1)
Quarter: 2013Q2

REPORT INFORMATION
  Report Type: Spontaneous
  Country: US (occurrence: None)
  Receive Date: 20130403
  Receipt Date: 20130403
  Transmission Date: 20140414
  Serious: Yes (Hospitalization)
  Sender: FDA-Public Use
  Company Number: US-2012-10675

PATIENT
  Age: 37 Year
  Sex: Male

DRUGS (6)
  1. BUSULFEX [Suspect]
     Indication: BONE MARROW CONDITIONING REGIMEN
  2. BUSULFEX [Suspect]
     Indication: CHEMOTHERAPY
  3. CYCLOPHOSPHAMIDE (CYCLOPHOSPHAMIDE) [Suspect]
     Indication: BONE MARROW CONDITIONING REGIMEN
  4. CYCLOPHOSPHAMIDE (CYCLOPHOSPHAMIDE) [Suspect]
     Indication: CHEMOTHERAPY
  5. METHYLPREDNISOLONE (METHYLPREDNISOLONE) [Concomitant]
  6. PREDNISOLONE (PREDNISOLONE ACETATE) [Concomitant]

REACTIONS (2)
  - Cystitis haemorrhagic [None]
  - BK virus infection [None]
